FAERS Safety Report 4808316-1 (Version None)
Quarter: 2005Q4

REPORT INFORMATION
  Report Type: 
  Country: None (occurrence: None)
  Receive Date: 20051021
  Receipt Date: 20051010
  Transmission Date: 20060501
  Serious: Yes (Other)
  Sender: FDA-Public Use
  Company Number: 505#3#2005-01697

PATIENT
  Age: 23 Year
  Sex: Male

DRUGS (2)
  1. OPTIPAR 20 MG (FIN) (PAROXETINE) [Suspect]
     Indication: DEPRESSION
     Dosage: 20 MILLIGRAM, P.O.
     Route: 048
     Dates: start: 20050912, end: 20050916
  2. OPTIPAR 20 MG (FIN) (PAROXETINE) [Suspect]
     Indication: PANIC DISORDER
     Dosage: 20 MILLIGRAM, P.O.
     Route: 048
     Dates: start: 20050912, end: 20050916

REACTIONS (2)
  - ELECTROCARDIOGRAM PQ INTERVAL PROLONGED [None]
  - LOSS OF CONSCIOUSNESS [None]
